FAERS Safety Report 19861396 (Version 1)
Quarter: 2021Q3

REPORT INFORMATION
  Report Type: Spontaneous
  Country: US (occurrence: US)
  Receive Date: 20210920
  Receipt Date: 20210920
  Transmission Date: 20211014
  Serious: Yes (Other)
  Sender: FDA-Public Use
  Company Number: US-PFIZER INC-202101177387

PATIENT
  Sex: Female

DRUGS (1)
  1. CHANTIX [Suspect]
     Active Substance: VARENICLINE TARTRATE
     Dosage: UNK

REACTIONS (7)
  - Nephropathy [Unknown]
  - Nausea [Unknown]
  - Suicidal ideation [Unknown]
  - Pelvic mass [Unknown]
  - Urinary tract infection [Unknown]
  - Agitation [Unknown]
  - Sepsis [Unknown]
